FAERS Safety Report 9451471 (Version 4)
Quarter: 2013Q4

REPORT INFORMATION
  Report Type: Report from Study
  Country: CA (occurrence: CA)
  Receive Date: 20130810
  Receipt Date: 20131015
  Transmission Date: 20140711
  Serious: Yes (Other)
  Sender: FDA-Public Use
  Company Number: CA-ROCHE-1176834

PATIENT
  Age: 66 Year
  Sex: Female
  Weight: 61 kg

DRUGS (19)
  1. ACTEMRA [Suspect]
     Indication: RHEUMATOID ARTHRITIS
     Route: 042
     Dates: start: 20121031
  2. RITUXIMAB [Suspect]
     Indication: PRODUCT USED FOR UNKNOWN INDICATION
     Route: 042
  3. PLAVIX [Suspect]
     Indication: PRODUCT USED FOR UNKNOWN INDICATION
     Route: 065
     Dates: end: 20130926
  4. PREDNISONE [Suspect]
     Indication: PRODUCT USED FOR UNKNOWN INDICATION
     Route: 065
  5. PREDNISONE [Suspect]
     Route: 065
  6. SULFASALAZINE [Concomitant]
  7. FOSAVANCE [Concomitant]
  8. LEVOTHYROXINE [Concomitant]
  9. ASPIRIN [Concomitant]
  10. COZAAR [Concomitant]
  11. LIPITOR [Concomitant]
  12. METOPROLOL TARTRATE [Concomitant]
  13. NITROGLYCERIN [Concomitant]
     Route: 060
  14. PANTOPRAZOLE SODIUM [Concomitant]
  15. OMEGA 3 [Concomitant]
  16. FOLIC ACID [Concomitant]
  17. VITAMIN C [Concomitant]
  18. METHOTREXAT [Concomitant]
  19. SYNTHROID [Concomitant]

REACTIONS (10)
  - Hypotension [Not Recovered/Not Resolved]
  - Sleep apnoea syndrome [Unknown]
  - Abdominal pain upper [Recovered/Resolved]
  - Dyspepsia [Recovered/Resolved]
  - Drug hypersensitivity [Unknown]
  - Abdominal discomfort [Recovered/Resolved]
  - Flatulence [Recovered/Resolved]
  - Blood thyroid stimulating hormone abnormal [Not Recovered/Not Resolved]
  - Sciatica [Unknown]
  - Traumatic haematoma [Not Recovered/Not Resolved]
